FAERS Safety Report 8303757-2 (Version None)
Quarter: 2012Q2

REPORT INFORMATION
  Report Type: 
  Country: None (occurrence: None)
  Receive Date: 20120423
  Receipt Date: 20120416
  Transmission Date: 20120825
  Serious: Yes (Hospitalization)
  Sender: FDA-Public Use
  Company Number: US-BAYER-2011-070824

PATIENT
  Age: 24 Year
  Sex: Female
  Weight: 68 kg

DRUGS (7)
  1. YAZ [Suspect]
     Indication: ACNE
     Dosage: UNK
     Route: 048
     Dates: start: 20080519, end: 20080801
  2. YAZ [Suspect]
     Indication: PREMENSTRUAL SYNDROME
  3. ASCORBIC ACID [Concomitant]
     Dosage: UNK
     Dates: start: 20010101
  4. PERCOCET [Concomitant]
     Dosage: 5/325
  5. YAZ [Suspect]
     Indication: CONTRACEPTION
     Dosage: UNK
     Route: 048
     Dates: start: 20080301, end: 20080801
  6. YAZ [Suspect]
     Indication: MENSTRUATION IRREGULAR
  7. MOTRIN [Concomitant]
     Dosage: 600

REACTIONS (3)
  - PULMONARY EMBOLISM [None]
  - PULMONARY INFARCTION [None]
  - PAIN [None]
